FAERS Safety Report 9365811 (Version 2)
Quarter: 2013Q3

REPORT INFORMATION
  Report Type: Report from Study
  Country: US (occurrence: US)
  Receive Date: 20130625
  Receipt Date: 20130723
  Transmission Date: 20140515
  Serious: Yes (Disabling)
  Sender: FDA-Public Use
  Company Number: PHHY2013US064618

PATIENT
  Age: 58 Year
  Sex: Female

DRUGS (11)
  1. GILENYA [Suspect]
     Indication: MULTIPLE SCLEROSIS
     Dosage: 0.5 MG, QD
     Route: 048
     Dates: start: 20130313, end: 20130313
  2. GILENYA [Suspect]
     Dosage: 0.5 MG, QD
     Route: 048
     Dates: start: 20130327
  3. GILENYA [Suspect]
     Dosage: 0.5 MG, QOD
     Route: 048
     Dates: start: 20130416, end: 20130709
  4. HYDROCODONE/APAP [Concomitant]
  5. TRAZODONE [Concomitant]
  6. LIPITOR [Concomitant]
  7. PREMPRO [Concomitant]
  8. ENALAPRIL [Concomitant]
  9. FISH OIL [Concomitant]
  10. VIT D [Concomitant]
  11. MULTIPLE VITAMINS [Concomitant]

REACTIONS (2)
  - Influenza like illness [Recovered/Resolved]
  - Prescribed underdose [Unknown]
